FAERS Safety Report 4458061-X (Version None)
Quarter: 2004Q3

REPORT INFORMATION
  Report Type: 
  Country: None (occurrence: None)
  Receive Date: 20040922
  Receipt Date: 20040907
  Transmission Date: 20050211
  Serious: Yes (Hospitalization)
  Sender: FDA-Public Use
  Company Number: D01200403476

PATIENT
  Age: 61 Year
  Sex: Female

DRUGS (12)
  1. OXALIPLATIN [Suspect]
     Dosage: 85 MG/M2 Q2W
     Route: 042
     Dates: start: 20040906, end: 20040906
  2. FLUOROURACIL [Suspect]
     Dosage: 400 MG/M2 AS IV BOLUS THEN 600 MG/M2 AS 22 HOURS CONTINUOUS INFUSION D1-D2 Q2W, INTRAVENOUS NOS
     Route: 042
     Dates: start: 20040906, end: 20040906
  3. (SR57746 OR PLACEBO) - CAPSULE - 1MG [Suspect]
     Indication: CHEMOTHERAPY NEUROTOXICITY ATTENUATION
     Dosage: 1 MG QD
     Route: 048
     Dates: start: 20031028, end: 20040906
  4. (SR57746 OR PLACEBO) - CAPSULE - 1MG [Suspect]
     Indication: COLORECTAL CANCER METASTATIC
     Dosage: 1 MG QD
     Route: 048
     Dates: start: 20031028, end: 20040906
  5. LEUCOVORIN CALCIUM [Suspect]
     Dosage: 200 MG/M2 AS 2 HOURS INFUSION ON D1-D2 Q2W, INTRAVENOUS NOS
     Route: 042
     Dates: start: 20040906, end: 20040906
  6. DECADRON [Concomitant]
  7. KYTRIL [Concomitant]
  8. VALOID SUPPOSITORIES (CYCLIZINE) [Concomitant]
  9. CALCIUM             (CALCIUM GLUBIONATE) [Concomitant]
  10. ACETAMINOPHEN W/ CODEINE [Concomitant]
  11. MAXOLON (METOCLOPRAMIDE HCL) [Concomitant]
  12. IMODIUM (LOPERAMIDE HCL) [Concomitant]

REACTIONS (3)
  - ATRIAL FIBRILLATION [None]
  - CHEST PAIN [None]
  - PALPITATIONS [None]
